FAERS Safety Report 8161579-X (Version None)
Quarter: 2012Q1

REPORT INFORMATION
  Report Type: 
  Country: None (occurrence: None)
  Receive Date: 20120224
  Receipt Date: 20120216
  Transmission Date: 20120608
  Serious: Yes (Hospitalization)
  Sender: FDA-Public Use
  Company Number: IT-GENZYME-THYM-1003087

PATIENT
  Sex: Male
  Weight: 75 kg

DRUGS (3)
  1. THYMOGLOBULIN [Suspect]
     Indication: BONE MARROW FAILURE
     Dosage: 35 MG, UNK
     Route: 042
     Dates: start: 20120103, end: 20120103
  2. CORTICOSTEROIDS [Concomitant]
     Indication: PRODUCT USED FOR UNKNOWN INDICATION
     Dosage: UNK
     Route: 065
  3. CYCLOSPORINE [Concomitant]
     Indication: PRODUCT USED FOR UNKNOWN INDICATION
     Dosage: UNK
     Route: 065

REACTIONS (7)
  - VOMITING [None]
  - HYPOTENSION [None]
  - HYPERTRANSAMINASAEMIA [None]
  - BACK PAIN [None]
  - ERYTHEMA [None]
  - DIZZINESS [None]
  - HYPERHIDROSIS [None]
